FAERS Safety Report 20009491 (Version 2)
Quarter: 2022Q1

REPORT INFORMATION
  Report Type: Spontaneous
  Country: US (occurrence: US)
  Receive Date: 20211028
  Receipt Date: 20220208
  Transmission Date: 20220423
  Serious: Yes (Hospitalization)
  Sender: FDA-Public Use
  Company Number: US-SECURA BIO, INC.-2021-SECUR-US003400

PATIENT
  Sex: Male

DRUGS (2)
  1. COPIKTRA [Suspect]
     Active Substance: DUVELISIB
     Indication: Follicular lymphoma
     Dosage: 25 MG, BID
     Route: 048
     Dates: end: 2021
  2. COPIKTRA [Suspect]
     Active Substance: DUVELISIB
     Dosage: 15 MG, BID
     Route: 048
     Dates: start: 2021, end: 20210925

REACTIONS (3)
  - Hospitalisation [Recovered/Resolved]
  - Diarrhoea [Unknown]
  - Off label use [Unknown]

NARRATIVE: CASE EVENT DATE: 20210101
